FAERS Safety Report 25130454 (Version 1)
Quarter: 2025Q1

REPORT INFORMATION
  Report Type: Spontaneous
  Country: DE (occurrence: DE)
  Receive Date: 20250327
  Receipt Date: 20250327
  Transmission Date: 20250408
  Serious: Yes (Other)
  Sender: ROVIPHARM SAS
  Company Number: DE-TEVA-VS-3307617

PATIENT
  Age: 19 Year
  Sex: Male

DRUGS (1)
  1. RISPERIDONE [Suspect]
     Active Substance: RISPERIDONE
     Indication: Schizophrenia

REACTIONS (4)
  - Poisoning [Unknown]
  - Breast discharge [Unknown]
  - Chest pain [Unknown]
  - Amnesia [Unknown]
